FAERS Safety Report 8889918 (Version 1)
Quarter: 2012Q4

REPORT INFORMATION
  Report Type: 
  Country: US (occurrence: US)
  Receive Date: 20121107
  Receipt Date: 20121107
  Transmission Date: 20130627
  Serious: No
  Sender: FDA-Public Use
  Company Number: US-PFIZER INC-2012271045

PATIENT
  Age: 24 Year
  Sex: Male

DRUGS (8)
  1. SOMAVERT [Suspect]
     Dosage: 40 mg, 1 dose
     Route: 058
  2. SOMAVERT [Suspect]
     Dosage: 10 mg, 1x/day
     Route: 058
  3. HYDROCORT [Concomitant]
     Dosage: 10 mg, UNK
  4. SYNTHROID [Concomitant]
     Dosage: 100 ug, UNK
  5. CABERGOLINE [Concomitant]
     Dosage: 0.5 mg, UNK
  6. DESMOPRESSIN [Concomitant]
     Dosage: 0.1 mg, UNK
  7. EFFEXOR [Concomitant]
     Dosage: 25 mg, UNK
  8. OCTREOTIDE [Concomitant]
     Dosage: 1000 ug, UNK

REACTIONS (3)
  - Injection site reaction [Unknown]
  - Injection site erythema [Unknown]
  - Injection site pain [Unknown]
